FAERS Safety Report 13139239 (Version 3)
Quarter: 2017Q1

REPORT INFORMATION
  Report Type: Spontaneous
  Country: BR (occurrence: BR)
  Receive Date: 20170123
  Receipt Date: 20170206
  Transmission Date: 20170428
  Serious: Yes (Other)
  Sender: FDA-Public Use
  Company Number: BR-PFIZER INC-2017028378

PATIENT
  Age: 32 Year
  Sex: Female
  Weight: 84 kg

DRUGS (5)
  1. GEODON [Suspect]
     Active Substance: ZIPRASIDONE HYDROCHLORIDE\ZIPRASIDONE MESYLATE
     Dosage: 80 MG, UNK
  2. RISPERIDONE. [Concomitant]
     Active Substance: RISPERIDONE
     Indication: SCHIZOPHRENIA
     Dosage: 3 DF, (3 MG) DAILY
     Route: 048
     Dates: start: 2009
  3. ENALAPRIL [Concomitant]
     Active Substance: ENALAPRIL
     Indication: HYPERTENSION
     Dosage: 1 DF, 1X/DAY
     Route: 048
  4. CITALOPRAM [Concomitant]
     Active Substance: CITALOPRAM HYDROBROMIDE
     Indication: SCHIZOPHRENIA
     Dosage: 20 MG, 1X/DAY
     Route: 048
     Dates: start: 2012
  5. AMPLICTIL /00011901/ [Concomitant]
     Indication: SCHIZOPHRENIA
     Dosage: 75 MG, DAILY
     Route: 048
     Dates: start: 2017

REACTIONS (8)
  - Diabetes mellitus [Unknown]
  - Weight increased [Unknown]
  - Blood cholesterol increased [Unknown]
  - Liver disorder [Unknown]
  - Abdominal distension [Unknown]
  - Hypertension [Unknown]
  - Blood triglycerides increased [Unknown]
  - Somnolence [Unknown]
